FAERS Safety Report 12526569 (Version 6)
Quarter: 2017Q2

REPORT INFORMATION
  Report Type: Report from Study
  Country: CA (occurrence: CA)
  Receive Date: 20160705
  Receipt Date: 20170526
  Transmission Date: 20170830
  Serious: Yes (Hospitalization, Other)
  Sender: FDA-Public Use
  Company Number: PHHY2014CA107222

PATIENT
  Age: 82 Year
  Sex: Female

DRUGS (2)
  1. SANDOSTATIN [Suspect]
     Active Substance: OCTREOTIDE ACETATE
     Indication: NEUROENDOCRINE TUMOUR
     Dosage: 50 UG, ONCE/SINGLE
     Route: 058
     Dates: start: 20140807
  2. SANDOSTATIN LAR DEPOT [Suspect]
     Active Substance: OCTREOTIDE ACETATE
     Indication: NEUROENDOCRINE TUMOUR
     Dosage: 30 MG, EVERY 4 WEEKS
     Route: 030
     Dates: start: 20140823

REACTIONS (15)
  - Metastases to bone [Unknown]
  - Blood pressure systolic increased [Unknown]
  - Intestinal haemorrhage [Unknown]
  - Blood pressure increased [Unknown]
  - Vomiting [Unknown]
  - Nephrolithiasis [Recovering/Resolving]
  - Malignant neoplasm progression [Unknown]
  - Polyp [Unknown]
  - Dehydration [Recovering/Resolving]
  - Haemorrhoids [Unknown]
  - Gastric disorder [Unknown]
  - Diarrhoea [Unknown]
  - Asthenia [Unknown]
  - Depressed mood [Unknown]
  - Pain [Recovered/Resolved]

NARRATIVE: CASE EVENT DATE: 2014
